FAERS Safety Report 25254485 (Version 1)
Quarter: 2025Q2

REPORT INFORMATION
  Report Type: Spontaneous
  Country: NL (occurrence: NL)
  Receive Date: 20250430
  Receipt Date: 20250430
  Transmission Date: 20250717
  Serious: Yes (Life-Threatening, Other)
  Sender: AUROBINDO
  Company Number: NL-LRB-01053202

PATIENT
  Age: 74 Year
  Sex: Female
  Weight: 64.2 kg

DRUGS (4)
  1. METOPROLOL [Suspect]
     Active Substance: METOPROLOL
     Indication: Cardiac failure
     Dosage: 50 MILLIGRAM, ONCE A DAY (1X PER DAG 1 STUK)
     Route: 048
     Dates: start: 20250324
  2. DIGOXIN [Suspect]
     Active Substance: DIGOXIN
     Indication: Cardiac failure
     Dosage: 0.12 MILLIGRAM, ONCE A DAY (1 X PER DAG 1 STUK)0.125 MG
     Route: 048
     Dates: start: 20250324
  3. SULFAMETHOXAZOLE\TRIMETHOPRIM [Suspect]
     Active Substance: SULFAMETHOXAZOLE\TRIMETHOPRIM
     Indication: Erysipelas
     Dosage: 1 DOSAGE FORM, TWO TIMES A DAY (2 X PER DAG 1 STUK)
     Route: 048
     Dates: start: 20250320, end: 20250323
  4. SULFAMETHOXAZOLE\TRIMETHOPRIM [Suspect]
     Active Substance: SULFAMETHOXAZOLE\TRIMETHOPRIM
     Indication: Cellulitis

REACTIONS (2)
  - Cardiogenic shock [Unknown]
  - Bradycardia [Unknown]
